FAERS Safety Report 18659102 (Version 1)
Quarter: 2020Q4

REPORT INFORMATION
  Report Type: Spontaneous
  Country: CN (occurrence: CN)
  Receive Date: 20201223
  Receipt Date: 20201223
  Transmission Date: 20210114
  Serious: Yes (Other)
  Sender: FDA-Public Use
  Company Number: NVSC2020CN337187

PATIENT
  Age: 49 Year
  Sex: Male
  Weight: 70 kg

DRUGS (2)
  1. ROSUVASTATIN. [Suspect]
     Active Substance: ROSUVASTATIN
     Indication: LIPIDS INCREASED
     Dosage: 10 MG, UNKNOWN
     Route: 048
     Dates: start: 20201115, end: 20201119
  2. SODIUM RABEPRAZOLE [Concomitant]
     Active Substance: RABEPRAZOLE SODIUM
     Indication: ABDOMINAL DISCOMFORT
     Dosage: 10 MG, UNKNOWN
     Route: 048
     Dates: start: 20201115, end: 20201119

REACTIONS (1)
  - Hepatic function abnormal [Recovering/Resolving]

NARRATIVE: CASE EVENT DATE: 20201119
